FAERS Safety Report 16985891 (Version 1)
Quarter: 2019Q4

REPORT INFORMATION
  Report Type: Spontaneous
  Country: US (occurrence: US)
  Receive Date: 20191031
  Receipt Date: 20191031
  Transmission Date: 20200122
  Serious: No
  Sender: FDA-Public Use
  Company Number: None

PATIENT
  Age: 38 Year
  Sex: Male
  Weight: 97.2 kg

DRUGS (2)
  1. DUPIXENT [Concomitant]
     Active Substance: DUPILUMAB
     Dates: start: 20180219
  2. DUPIXENT [Suspect]
     Active Substance: DUPILUMAB
     Indication: DERMATITIS ATOPIC
     Dates: start: 20180219

REACTIONS (3)
  - Pain in extremity [None]
  - Tendonitis [None]
  - Arthralgia [None]

NARRATIVE: CASE EVENT DATE: 20191031
